FAERS Safety Report 20377498 (Version 2)
Quarter: 2022Q1

REPORT INFORMATION
  Report Type: Spontaneous
  Country: US (occurrence: US)
  Receive Date: 20220126
  Receipt Date: 20220208
  Transmission Date: 20220423
  Serious: Yes (Hospitalization)
  Sender: FDA-Public Use
  Company Number: US-BIOVITRUM-2022US00969

PATIENT
  Age: 1 Year
  Sex: Male
  Weight: 9 kg

DRUGS (6)
  1. SYNAGIS [Suspect]
     Active Substance: PALIVIZUMAB
     Indication: Premature baby
     Route: 030
     Dates: start: 20201105
  2. SYNAGIS [Suspect]
     Active Substance: PALIVIZUMAB
     Indication: Bronchopulmonary dysplasia
     Dosage: DOSE: 1.4 ML
     Dates: start: 20220126
  3. SYNAGIS [Suspect]
     Active Substance: PALIVIZUMAB
     Indication: Cerebral palsy
  4. SYNAGIS [Suspect]
     Active Substance: PALIVIZUMAB
     Indication: Patent ductus arteriosus
  5. SYNAGIS [Suspect]
     Active Substance: PALIVIZUMAB
     Indication: Hydrocephalus
  6. SYNAGIS [Suspect]
     Active Substance: PALIVIZUMAB
     Indication: Arteriovenous malformation

REACTIONS (7)
  - Bronchitis [Unknown]
  - Human metapneumovirus test positive [Recovered/Resolved]
  - Dyspnoea [Unknown]
  - Oxygen saturation decreased [Unknown]
  - Pyrexia [Unknown]
  - Adenovirus infection [Recovered/Resolved]
  - Product dose omission issue [Unknown]

NARRATIVE: CASE EVENT DATE: 20211221
